FAERS Safety Report 14030128 (Version 4)
Quarter: 2018Q1

REPORT INFORMATION
  Report Type: Report from Study
  Country: US (occurrence: US)
  Receive Date: 20171002
  Receipt Date: 20180309
  Transmission Date: 20180508
  Serious: Yes (Hospitalization)
  Sender: FDA-Public Use
  Company Number: US-ACTELION-A-NJ2017-158831

PATIENT
  Age: 28 Year
  Sex: Female
  Weight: 54.42 kg

DRUGS (4)
  1. REMODULIN [Concomitant]
     Active Substance: TREPROSTINIL
     Dosage: UNK
  2. REMODULIN [Concomitant]
     Active Substance: TREPROSTINIL
     Dosage: 185 NG/KG, PER MIN
     Dates: start: 20171107
  3. TRACLEER [Suspect]
     Active Substance: BOSENTAN
     Indication: PULMONARY ARTERIAL HYPERTENSION
     Dosage: 125 MG, BID
     Route: 048
  4. SILDENAFIL. [Concomitant]
     Active Substance: SILDENAFIL
     Indication: PULMONARY ARTERIAL HYPERTENSION

REACTIONS (8)
  - Gastrointestinal haemorrhage [Unknown]
  - Anaemia [Unknown]
  - Transplant evaluation [Unknown]
  - Dizziness [Unknown]
  - Transfusion [Unknown]
  - Oedema peripheral [Unknown]
  - Haematemesis [Unknown]
  - Syncope [Unknown]
